FAERS Safety Report 6562146-1 (Version None)
Quarter: 2010Q1

REPORT INFORMATION
  Report Type: 
  Country: None (occurrence: None)
  Receive Date: 20100130
  Receipt Date: 20091218
  Transmission Date: 20100710
  Serious: No
  Sender: FDA-Public Use
  Company Number: US-ABBOTT-09P-163-0603903-00

PATIENT
  Sex: Female

DRUGS (1)
  1. HUMIRA [Suspect]
     Indication: PSORIASIS
     Dates: start: 20090722

REACTIONS (5)
  - AGEUSIA [None]
  - GINGIVAL ERYTHEMA [None]
  - GLOSSODYNIA [None]
  - ORAL PAIN [None]
  - TONGUE DISORDER [None]
